FAERS Safety Report 7832416-5 (Version None)
Quarter: 2011Q4

REPORT INFORMATION
  Report Type: 
  Country: None (occurrence: None)
  Receive Date: 20111022
  Receipt Date: 20111017
  Transmission Date: 20120403
  Serious: Yes (Other)
  Sender: FDA-Public Use
  Company Number: US-BAYER-2011-101417

PATIENT
  Age: 67 Year
  Sex: Female
  Weight: 68 kg

DRUGS (5)
  1. CALCIUM CITRATE [Concomitant]
  2. VITAMIIN C [Concomitant]
  3. ALEVE (CAPLET) [Suspect]
     Indication: PAIN
     Dosage: 1 DF, ONCE
     Route: 048
     Dates: start: 20110101, end: 20110101
  4. MULTI-VITAMINS [Concomitant]
  5. METFORMIN HCL [Concomitant]

REACTIONS (4)
  - GENERALISED ERYTHEMA [None]
  - ERYTHEMA [None]
  - SWOLLEN TONGUE [None]
  - HYPERSENSITIVITY [None]
